FAERS Safety Report 9344042 (Version 1)
Quarter: 2013Q2

REPORT INFORMATION
  Report Type: Spontaneous
  Country: US (occurrence: US)
  Receive Date: 20130612
  Receipt Date: 20130612
  Transmission Date: 20140414
  Serious: Yes (Other)
  Sender: FDA-Public Use
  Company Number: US-PFIZER INC-2013172573

PATIENT
  Age: 40 Year
  Sex: Female

DRUGS (4)
  1. LO/OVRAL-28 [Suspect]
     Indication: CONTRACEPTION
     Dosage: 1 DF, 1X/DAY
     Dates: end: 201202
  2. LO/OVRAL-28 [Suspect]
     Dosage: 1 DF, 1X/DAY
  3. MIRAPEX [Concomitant]
     Indication: RESTLESS LEGS SYNDROME
     Dosage: UNK
  4. CELEXA [Concomitant]
     Indication: DEPRESSION

REACTIONS (4)
  - Product quality issue [Unknown]
  - Abortion spontaneous [Unknown]
  - Drug ineffective [Unknown]
  - Unintended pregnancy [Unknown]
